FAERS Safety Report 18119503 (Version 2)
Quarter: 2020Q3

REPORT INFORMATION
  Report Type: Report from Study
  Country: DE (occurrence: DE)
  Receive Date: 20200806
  Receipt Date: 20200811
  Transmission Date: 20201103
  Serious: Yes (Life-Threatening, Hospitalization, Other)
  Sender: FDA-Public Use
  Company Number: DE-PFIZER INC-2020121581

PATIENT
  Age: 36 Year
  Sex: Male
  Weight: 72 kg

DRUGS (21)
  1. BISOPROLOL [Suspect]
     Active Substance: BISOPROLOL
     Indication: CARDIAC FAILURE
     Dosage: 5 MG, QD
     Route: 048
     Dates: end: 20200526
  2. EPCLUSA [Concomitant]
     Active Substance: SOFOSBUVIR\VELPATASVIR
     Indication: CHRONIC HEPATITIS
     Dosage: 500 MG (400 MG SOFOSBUVIR, 100 MG VELPATASVIR) ONCE DAILY
     Route: 065
     Dates: start: 20191212, end: 20200304
  3. ASPIRIN. [Concomitant]
     Active Substance: ASPIRIN
     Indication: CARDIOVASCULAR DISORDER
     Dosage: 100 MG
     Route: 065
     Dates: start: 20200527
  4. PANTOPRAZOLE [Concomitant]
     Active Substance: PANTOPRAZOLE
     Dosage: 40 MG
     Route: 065
     Dates: start: 20200527
  5. METAMIZOLE [Concomitant]
     Active Substance: METAMIZOLE
     Dosage: UNK UNK, PRN
     Route: 065
     Dates: start: 20200527
  6. METOPROLOL. [Concomitant]
     Active Substance: METOPROLOL
     Indication: CARDIOVASCULAR DISORDER
     Dosage: 23.75 MG
     Route: 065
     Dates: start: 20200527
  7. ENTRESTO [Concomitant]
     Active Substance: SACUBITRIL\VALSARTAN
     Indication: CARDIOVASCULAR DISORDER
     Dosage: 24/26MG
     Route: 065
     Dates: start: 20200527
  8. TORASEMIDE [Suspect]
     Active Substance: TORSEMIDE
     Indication: CARDIAC FAILURE
     Dosage: 20 MG, QD
     Route: 048
     Dates: end: 20200526
  9. BIKTARVY [Concomitant]
     Active Substance: BICTEGRAVIR SODIUM\EMTRICITABINE\TENOFOVIR ALAFENAMIDE FUMARATE
     Indication: HIV INFECTION
     Dosage: 50 MG/200MG/25 MG
     Route: 065
     Dates: start: 20190222
  10. DACLATASVIR DIHYDROCHLORIDE [Suspect]
     Active Substance: DACLATASVIR DIHYDROCHLORIDE
     Indication: HEPATITIS C
     Dosage: UNK
     Route: 065
  11. AMOXCLAV [AMOXICILLIN;CLAVULANIC ACID] [Concomitant]
     Active Substance: AMOXICILLIN\CLAVULANIC ACID
     Dosage: 1500MG/375 MG
     Route: 065
     Dates: start: 20200116, end: 20200122
  12. EFAVIRENZ + EMTRICITABINE + TENOFOVIR [EFAVIRENZ;EMTRICITABINE;TENOFOV [Concomitant]
     Dosage: 200 MG
     Route: 065
  13. EFAVIRENZ + EMTRICITABINE + TENOFOVIR [EFAVIRENZ;EMTRICITABINE;TENOFOV [Concomitant]
     Dosage: 25 MG
     Route: 065
  14. ELIQUIS [Suspect]
     Active Substance: APIXABAN
     Indication: VENOUS THROMBOSIS
     Dosage: 10 MG, QD
     Route: 048
     Dates: start: 20190222, end: 20200526
  15. RAMIPRIL. [Suspect]
     Active Substance: RAMIPRIL
     Indication: CARDIAC FAILURE
     Dosage: 2.5 MG, QD
     Route: 048
     Dates: start: 20190222, end: 20200526
  16. SPIRONOLACTONE. [Suspect]
     Active Substance: SPIRONOLACTONE
     Indication: CARDIAC FAILURE
     Dosage: 50 MG, QD
     Route: 048
     Dates: end: 20200526
  17. TORASEMIDE [Suspect]
     Active Substance: TORSEMIDE
     Dosage: 10 MG
     Route: 048
     Dates: start: 20200527
  18. NAC [ACETYLCYSTEINE] [Concomitant]
     Active Substance: ACETYLCYSTEINE
     Dosage: 600 MG
     Route: 065
     Dates: start: 20200106
  19. EPLERENONE. [Concomitant]
     Active Substance: EPLERENONE
     Indication: CARDIOVASCULAR DISORDER
     Dosage: 25 MG
     Route: 065
     Dates: start: 20200527
  20. CIPROFLOXACIN. [Concomitant]
     Active Substance: CIPROFLOXACIN
     Dosage: 500 MG
     Route: 065
     Dates: start: 20200527, end: 20200630
  21. EFAVIRENZ + EMTRICITABINE + TENOFOVIR [EFAVIRENZ;EMTRICITABINE;TENOFOV [Concomitant]
     Indication: HIV INFECTION
     Dosage: 50 MG
     Route: 065
     Dates: start: 20190222

REACTIONS (10)
  - Mental disorder [Not Recovered/Not Resolved]
  - Toxicity to various agents [Recovering/Resolving]
  - Retroperitoneal haematoma [Recovering/Resolving]
  - Alcohol poisoning [Recovering/Resolving]
  - Kidney rupture [Recovering/Resolving]
  - Rib fracture [Recovering/Resolving]
  - Splenic rupture [Recovering/Resolving]
  - Off label use [Unknown]
  - Fall [Recovering/Resolving]
  - Renal disorder [Recovering/Resolving]

NARRATIVE: CASE EVENT DATE: 20190222
